FAERS Safety Report 5046458-9 (Version None)
Quarter: 2006Q2

REPORT INFORMATION
  Report Type: 
  Country: None (occurrence: None)
  Receive Date: 20060629
  Receipt Date: 20060623
  Transmission Date: 20061013
  Serious: Yes (Other)
  Sender: FDA-Public Use
  Company Number: US-2005-021070

PATIENT
  Age: 58 Year
  Sex: Female

DRUGS (1)
  1. BETASERON [Suspect]
     Indication: MULTIPLE SCLEROSIS
     Dosage: 8 MUI, EVERY 2D, SUBCUTANEOUS
     Route: 058
     Dates: start: 19940329

REACTIONS (3)
  - INJECTION SITE INDURATION [None]
  - INJECTION SITE INFECTION [None]
  - OVARIAN MASS [None]
